FAERS Safety Report 14759091 (Version 3)
Quarter: 2019Q2

REPORT INFORMATION
  Report Type: Spontaneous
  Country: JP (occurrence: JP)
  Receive Date: 20180413
  Receipt Date: 20190429
  Transmission Date: 20190711
  Serious: Yes (Hospitalization, Other)
  Sender: FDA-Public Use
  Company Number: JP-ELI_LILLY_AND_COMPANY-JP201804003955

PATIENT
  Age: 67 Year
  Sex: Female

DRUGS (3)
  1. ERBITUX [Suspect]
     Active Substance: CETUXIMAB
     Indication: BONE CANCER
     Dosage: 400 DF, UNKNOWN
     Route: 041
     Dates: start: 20180312, end: 20180312
  2. PACLITAXEL/GENERICS [Suspect]
     Active Substance: PACLITAXEL
     Indication: BONE CANCER
     Dosage: 80 MG/M2, UNKNOWN
     Route: 065
     Dates: start: 20180312, end: 20180312
  3. ERBITUX [Suspect]
     Active Substance: CETUXIMAB
     Dosage: 250 DF, UNKNOWN
     Route: 041
     Dates: start: 201803

REACTIONS (3)
  - Acute myeloid leukaemia [Not Recovered/Not Resolved]
  - Myelodysplastic syndrome [Not Recovered/Not Resolved]
  - Off label use [Unknown]

NARRATIVE: CASE EVENT DATE: 20180319
